FAERS Safety Report 4338640-0 (Version None)
Quarter: 2004Q2

REPORT INFORMATION
  Report Type: 
  Country: None (occurrence: None)
  Receive Date: 20040409
  Receipt Date: 20040401
  Transmission Date: 20050107
  Serious: Yes (Life-Threatening, Hospitalization)
  Sender: FDA-Public Use
  Company Number: 2004-04-0015

PATIENT
  Age: 53 Year
  Sex: Female

DRUGS (2)
  1. DIPROFOS (BETAMETHASONE SODIUM PHOSPHATE/ DIPROPIONATE INJECTABLE SUSP [Suspect]
     Indication: HYPERSENSITIVITY
     Dosage: 7 MG/2 ML INTRAMUSCULAR
     Route: 030
     Dates: start: 20031118, end: 20031118
  2. LEVOCETIRIZINE [Concomitant]

REACTIONS (1)
  - TOXIC SKIN ERUPTION [None]
